FAERS Safety Report 10998719 (Version 2)
Quarter: 2015Q2

REPORT INFORMATION
  Report Type: Spontaneous
  Country: EG (occurrence: EG)
  Receive Date: 20150408
  Receipt Date: 20150507
  Transmission Date: 20150821
  Serious: Yes (Hospitalization)
  Sender: FDA-Public Use
  Company Number: EG-GILEAD-2015-0146357

PATIENT
  Age: 70 Year
  Sex: Male

DRUGS (5)
  1. RIBAVIRIN. [Suspect]
     Active Substance: RIBAVIRIN
     Indication: HEPATITIS C
     Dosage: UNK
     Route: 048
  2. BECOZYME                           /00003501/ [Concomitant]
     Dosage: UNK, QD
     Route: 030
  3. FOLIC ACID. [Concomitant]
     Active Substance: FOLIC ACID
     Dosage: UNK, QD
     Route: 048
  4. SOVALDI [Suspect]
     Active Substance: SOFOSBUVIR
     Indication: HEPATITIS C
     Dosage: 400 MG, QD
     Route: 048
  5. INTERFERON ALFA NOS [Suspect]
     Active Substance: INTERFERON ALFA-2A OR INTERFERON ALFA-2B
     Indication: HEPATITIS C
     Dosage: UNK, Q1WK
     Route: 058

REACTIONS (7)
  - Abdominal distension [Recovering/Resolving]
  - Dandruff [Unknown]
  - Dermatitis [Recovering/Resolving]
  - Rash [Recovered/Resolved]
  - Peripheral swelling [Recovering/Resolving]
  - Inflammation [Recovering/Resolving]
  - Pruritus generalised [Recovering/Resolving]
